FAERS Safety Report 5823420-7 (Version None)
Quarter: 2008Q3

REPORT INFORMATION
  Report Type: 
  Country: None (occurrence: None)
  Receive Date: 20080725
  Receipt Date: 20070924
  Transmission Date: 20090109
  Serious: No
  Sender: FDA-Public Use
  Company Number: US-ABBOTT-07P-163-0366419-00

PATIENT
  Age: 36 Year
  Sex: Female

DRUGS (3)
  1. NORVIR [Suspect]
     Indication: ANTIVIRAL TREATMENT
     Route: 048
     Dates: start: 20070329
  2. LAMIVUDINE + ZIDOVUDINE [Suspect]
     Indication: ANTIVIRAL TREATMENT
     Route: 048
     Dates: start: 20070329
  3. REYATAZ [Suspect]
     Indication: ANTIVIRAL TREATMENT
     Route: 048
     Dates: start: 20070329

REACTIONS (1)
  - ALPHA 1 FOETOPROTEIN ABNORMAL [None]
